FAERS Safety Report 24824603 (Version 1)
Quarter: 2025Q1

REPORT INFORMATION
  Report Type: Spontaneous
  Country: US (occurrence: None)
  Receive Date: 20250108
  Receipt Date: 20250108
  Transmission Date: 20250408
  Serious: Yes (Hospitalization)
  Sender: FDA-CTU
  Company Number: None

PATIENT
  Age: 53 Year
  Sex: Female

DRUGS (1)
  1. IBRANCE [Suspect]
     Active Substance: PALBOCICLIB
     Indication: Breast cancer female
     Route: 048

REACTIONS (8)
  - Diarrhoea [None]
  - Oropharyngeal pain [None]
  - Cough [None]
  - Fall [None]
  - Ankle fracture [None]
  - Foot fracture [None]
  - Haemoglobin decreased [None]
  - Nausea [None]
